FAERS Safety Report 5337214-2 (Version None)
Quarter: 2007Q2

REPORT INFORMATION
  Report Type: 
  Country: None (occurrence: None)
  Receive Date: 20070529
  Receipt Date: 20070523
  Transmission Date: 20071010
  Serious: Yes (Hospitalization)
  Sender: FDA-Public Use
  Company Number: A0652644A

PATIENT
  Age: 33 Year
  Sex: Female

DRUGS (6)
  1. AVANDIA [Suspect]
     Dosage: 4MG TWICE PER DAY
     Route: 048
     Dates: start: 20040501, end: 20070522
  2. HYZAAR [Concomitant]
  3. TOPROL-XL [Concomitant]
  4. CARDENSIEL [Concomitant]
  5. METFORMIN HCL [Concomitant]
  6. UNKNOWN DRUG FOR ANXIETY [Concomitant]
     Indication: ANXIETY

REACTIONS (5)
  - ARTHRALGIA [None]
  - CHEST PAIN [None]
  - HEART VALVE INSUFFICIENCY [None]
  - NAUSEA [None]
  - WEIGHT INCREASED [None]
